FAERS Safety Report 23640705 (Version 1)
Quarter: 2024Q1

REPORT INFORMATION
  Report Type: Report from Study
  Country: US (occurrence: US)
  Receive Date: 20240318
  Receipt Date: 20240318
  Transmission Date: 20240410
  Serious: Yes (Other)
  Sender: FDA-Public Use
  Company Number: US-Merck Healthcare KGaA-2024013505

PATIENT
  Sex: Male

DRUGS (1)
  1. REBIF [Suspect]
     Active Substance: INTERFERON BETA-1A
     Indication: Multiple sclerosis
     Route: 058
     Dates: start: 20130402

REACTIONS (5)
  - Loss of consciousness [Unknown]
  - Fall [Unknown]
  - Feeling abnormal [Unknown]
  - Memory impairment [Unknown]
  - Balance disorder [Unknown]
